FAERS Safety Report 6036822-3 (Version None)
Quarter: 2009Q1

REPORT INFORMATION
  Report Type: 
  Country: None (occurrence: None)
  Receive Date: 20090114
  Receipt Date: 20090107
  Transmission Date: 20090719
  Serious: Yes (Other)
  Sender: FDA-Public Use
  Company Number: PHNU2007DE01365

PATIENT
  Sex: Female
  Weight: 47 kg

DRUGS (6)
  1. EXJADE [Suspect]
     Indication: HAEMOSIDEROSIS
     Dosage: 500 MG/DAY
     Route: 048
     Dates: start: 20061114
  2. EXJADE [Suspect]
     Dosage: 10 MG/KG
     Route: 048
  3. EXJADE [Suspect]
     Dosage: 5 MG/KG
     Route: 048
     Dates: start: 20071101
  4. FOSAMAX [Concomitant]
     Indication: OSTEOPOROSIS
     Dosage: 10 MG, QD
  5. URBASON [Concomitant]
     Indication: MUSCULOSKELETAL PAIN
     Dosage: 4 MG, QD
  6. GLIBENHEXAL [Concomitant]
     Dosage: 3.5 MG DAILY
     Dates: start: 20070323, end: 20080422

REACTIONS (2)
  - DIABETES MELLITUS [None]
  - TREATMENT NONCOMPLIANCE [None]
